FAERS Safety Report 18245845 (Version 13)
Quarter: 2021Q1

REPORT INFORMATION
  Report Type: Report from Study
  Country: None (occurrence: NL)
  Receive Date: 20200909
  Receipt Date: 20210309
  Transmission Date: 20210419
  Serious: Yes (Other)
  Sender: FDA-Public Use
  Company Number: NL-ABBVIE-19K-114-2992881-00

PATIENT
  Age: 67 Year
  Sex: Female

DRUGS (6)
  1. DUODOPA [Suspect]
     Active Substance: CARBIDOPA\LEVODOPA
     Indication: PARKINSON^S DISEASE
     Dosage: MD: 9.0ML, CD: 5.2ML/H, ED: 3.0ML?REMAINED AT 16 HOUR ADMINISTRATION.
     Route: 050
     Dates: start: 20191021
  2. OXYCODONE [Concomitant]
     Active Substance: OXYCODONE
     Indication: PRODUCT USED FOR UNKNOWN INDICATION
     Dosage: A HALF WHEN FEELING VERY DYSKINETIC
  3. DUODOPA [Suspect]
     Active Substance: CARBIDOPA\LEVODOPA
     Dosage: MD: 9.3 ML CD: 5.1 ML/H ED: 3.0 ML?REMAINS AT 16 HOURS
     Route: 050
  4. LEVODOPA/CARBIDOPA [Concomitant]
     Active Substance: CARBIDOPA\LEVODOPA
     Indication: PRODUCT USED FOR UNKNOWN INDICATION
     Dosage: 2 TABLETS 2 TIMES
  5. DUODOPA [Suspect]
     Active Substance: CARBIDOPA\LEVODOPA
     Dosage: MD: 9.3ML, CD: 4.2ML/H, ED: 2.0ML
     Route: 050
  6. DUODOPA [Suspect]
     Active Substance: CARBIDOPA\LEVODOPA
     Dosage: MD: 9.3ML, CD: 4.8ML/H, ED: 2.0ML?REMAINS AT 16 HOURS
     Route: 050

REACTIONS (35)
  - Restlessness [Not Recovered/Not Resolved]
  - Hypophagia [Not Recovered/Not Resolved]
  - Fatigue [Unknown]
  - Adverse drug reaction [Recovered/Resolved]
  - Mobility decreased [Not Recovered/Not Resolved]
  - Cataract [Recovered/Resolved]
  - Hyperkinesia [Not Recovered/Not Resolved]
  - Stoma site discharge [Not Recovered/Not Resolved]
  - Condition aggravated [Not Recovered/Not Resolved]
  - Disturbance in attention [Not Recovered/Not Resolved]
  - Tremor [Not Recovered/Not Resolved]
  - Confusional state [Not Recovered/Not Resolved]
  - Cataract [Unknown]
  - Unevaluable event [Not Recovered/Not Resolved]
  - On and off phenomenon [Not Recovered/Not Resolved]
  - Freezing phenomenon [Not Recovered/Not Resolved]
  - Muscle rigidity [Not Recovered/Not Resolved]
  - Tension [Not Recovered/Not Resolved]
  - Panic attack [Not Recovered/Not Resolved]
  - Panic reaction [Not Recovered/Not Resolved]
  - Bradykinesia [Not Recovered/Not Resolved]
  - Hypotension [Unknown]
  - Adverse reaction [Unknown]
  - Device issue [Unknown]
  - Device dislocation [Unknown]
  - Weight decreased [Recovered/Resolved]
  - Dyskinesia [Not Recovered/Not Resolved]
  - Sleep disorder [Not Recovered/Not Resolved]
  - Blood pressure abnormal [Not Recovered/Not Resolved]
  - Feeling abnormal [Unknown]
  - Malaise [Not Recovered/Not Resolved]
  - Stoma site reaction [Unknown]
  - Stress [Not Recovered/Not Resolved]
  - Device kink [Unknown]
  - Anxiety [Not Recovered/Not Resolved]

NARRATIVE: CASE EVENT DATE: 2019
